FAERS Safety Report 7494519-7 (Version None)
Quarter: 2011Q2

REPORT INFORMATION
  Report Type: 
  Country: None (occurrence: None)
  Receive Date: 20110520
  Receipt Date: 20110509
  Transmission Date: 20111010
  Serious: Yes (Other)
  Sender: FDA-Public Use
  Company Number: PHHY2011US36619

PATIENT
  Sex: Female
  Weight: 67.12 kg

DRUGS (6)
  1. ASTELIN [Concomitant]
     Indication: CHRONIC SINUSITIS
     Dosage: UNK
     Route: 045
     Dates: start: 20030616
  2. GLEEVEC [Suspect]
     Indication: GASTROINTESTINAL STROMAL TUMOUR
     Dosage: 400 MG, DAILY
     Route: 048
     Dates: start: 20061025
  3. FEXOFENADINE [Concomitant]
     Indication: CHRONIC SINUSITIS
     Dosage: 180 MG, UNK
     Route: 048
     Dates: start: 20051119
  4. METFORMIN HCL [Concomitant]
     Indication: POLYCYSTIC OVARIES
     Dosage: 1000 MG, BID
     Route: 048
     Dates: start: 20011201
  5. MUCINEX [Concomitant]
     Dosage: 600 MG, UNK
     Route: 048
     Dates: start: 20030616
  6. FLONASE [Concomitant]
     Indication: CHRONIC SINUSITIS
     Dosage: UNK UKN, UNK
     Route: 045
     Dates: start: 20060404

REACTIONS (6)
  - BLOOD IRON DECREASED [None]
  - FATIGUE [None]
  - HAEMATOCRIT DECREASED [None]
  - SERUM FERRITIN DECREASED [None]
  - MALAISE [None]
  - HAEMOGLOBIN DECREASED [None]
